FAERS Safety Report 7347451-3 (Version None)
Quarter: 2011Q1

REPORT INFORMATION
  Report Type: 
  Country: None (occurrence: None)
  Receive Date: 20110311
  Receipt Date: 20110301
  Transmission Date: 20110831
  Serious: Yes (Other)
  Sender: FDA-Public Use
  Company Number: PHHY2010JP82705

PATIENT
  Sex: Female
  Weight: 58 kg

DRUGS (17)
  1. BIOFERMIN R [Concomitant]
     Dosage: 3 DF, UNK
     Route: 048
     Dates: start: 20100514
  2. BIOFERMIN R [Concomitant]
     Dosage: 3 DF, UNK
     Route: 048
     Dates: end: 20100602
  3. FOSMICIN [Concomitant]
     Dosage: 3 DF, UNK
     Route: 048
     Dates: start: 20100514, end: 20100526
  4. LOPEMIN [Concomitant]
     Dosage: 2 DF, UNK
     Route: 048
     Dates: start: 20100528, end: 20100604
  5. RED BLOOD CELLS, LEUCOCYTE DEPLETED [Concomitant]
     Dosage: 2 UNITS ONCE A WEEK
  6. EXJADE [Suspect]
     Dosage: 500 MG, DAILY
     Route: 048
     Dates: start: 20100903
  7. MUCOSTA [Concomitant]
     Dosage: 300 MG, UNK
     Route: 048
     Dates: start: 20100409, end: 20100506
  8. CRAVIT [Concomitant]
     Dosage: 1 DF, UNK
     Route: 048
     Dates: start: 20100507
  9. LASIX [Concomitant]
     Dosage: 1 DF, UNK
     Route: 048
     Dates: start: 20100325, end: 20100506
  10. EXJADE [Suspect]
     Dosage: 250 MG, DAILY
     Route: 048
     Dates: start: 20100612, end: 20100716
  11. CRAVIT [Concomitant]
     Dosage: 1 DF, UNK
     Route: 048
     Dates: end: 20100610
  12. EXJADE [Suspect]
     Indication: IRON OVERLOAD
     Dosage: 125 MG, DAILY
     Route: 048
     Dates: start: 20100325, end: 20100331
  13. LOCOID [Concomitant]
     Dosage: UNK
     Route: 061
     Dates: start: 20100709
  14. EXJADE [Suspect]
     Dosage: 250 MG, DAILY
     Route: 048
     Dates: start: 20100401, end: 20100527
  15. FINIBAX [Concomitant]
     Dosage: 250 MG, UNK
     Route: 041
     Dates: start: 20100430
  16. EXJADE [Suspect]
     Dosage: 375 MG, DAILY
     Route: 048
     Dates: start: 20100717, end: 20100902
  17. CRAVIT [Concomitant]
     Dosage: 1 DF, UNK
     Route: 048

REACTIONS (10)
  - ANAEMIA [None]
  - DIARRHOEA [None]
  - ARRHYTHMIA [None]
  - CARDIAC FAILURE [None]
  - SKIN INDURATION [None]
  - GLOSSITIS [None]
  - ERYTHEMA [None]
  - DIPLOPIA [None]
  - PAIN [None]
  - BLOOD CREATININE INCREASED [None]
